FAERS Safety Report 4435929-1 (Version None)
Quarter: 2004Q3

REPORT INFORMATION
  Report Type: 
  Country: None (occurrence: None)
  Receive Date: 20040826
  Receipt Date: 20040813
  Transmission Date: 20050211
  Serious: Yes (Death)
  Sender: FDA-Public Use
  Company Number: 208435

PATIENT
  Age: 29 Year
  Sex: Male

DRUGS (4)
  1. AVASTIN [Suspect]
     Indication: COLORECTAL CANCER
     Dosage: 614 MG, INTRAVENOUS
     Route: 042
     Dates: start: 20040420
  2. IRINOTECAN (IRINOTECAN HYDROCHLORIDE) [Suspect]
  3. FLUOROURACIL [Concomitant]
  4. LEUCOVORIN CALCIUM [Concomitant]

REACTIONS (1)
  - SUDDEN DEATH [None]
